FAERS Safety Report 7175437-0 (Version None)
Quarter: 2010Q4

REPORT INFORMATION
  Report Type: 
  Country: None (occurrence: None)
  Receive Date: 20101215
  Receipt Date: 20101215
  Transmission Date: 20110411
  Serious: Yes (Hospitalization)
  Sender: FDA-Public Use
  Company Number: None

PATIENT
  Sex: Female
  Weight: 49.4 kg

DRUGS (16)
  1. ERLOTINIB [Suspect]
     Indication: PANCREATIC CARCINOMA
     Dosage: 150 MG PO INTERMITTENT
     Route: 048
     Dates: start: 20101008, end: 20101129
  2. GEMZAR [Suspect]
     Indication: PANCREATIC CARCINOMA
     Dosage: 500 MG/M2 IV WEEKLY
     Route: 042
     Dates: start: 20101007, end: 20101110
  3. BUPROPION [Concomitant]
  4. DALTEPARIN SODIUM [Concomitant]
  5. DEXAMETHASONE [Concomitant]
  6. DOCUSATE [Concomitant]
  7. FENTANYL [Concomitant]
  8. GABAPENTIN [Concomitant]
  9. HYDROMORPHONE HCL [Concomitant]
  10. KETAMINE [Concomitant]
  11. LEVOTHYROXINE [Concomitant]
  12. PANCREAZE MT-10 [Concomitant]
  13. LOPERAMIDE [Concomitant]
  14. LORATADINE [Concomitant]
  15. LORAZEPAM [Concomitant]
  16. METHADONE HCL [Concomitant]

REACTIONS (3)
  - DEHYDRATION [None]
  - MALIGNANT NEOPLASM PROGRESSION [None]
  - PANCREATIC CARCINOMA METASTATIC [None]
